FAERS Safety Report 16403992 (Version 2)
Quarter: 2019Q2

REPORT INFORMATION
  Report Type: Spontaneous
  Country: US (occurrence: US)
  Receive Date: 20190607
  Receipt Date: 20190619
  Transmission Date: 20190711
  Serious: Yes (Hospitalization, Other)
  Sender: FDA-Public Use
  Company Number: US-ASTRAZENECA-2018SF27118

PATIENT
  Age: 836 Month
  Sex: Female

DRUGS (49)
  1. ASPIRIN. [Concomitant]
     Active Substance: ASPIRIN
  2. PLAVIX [Concomitant]
     Active Substance: CLOPIDOGREL BISULFATE
  3. LOVENOX [Concomitant]
     Active Substance: ENOXAPARIN SODIUM
  4. AZACTAM [Concomitant]
     Active Substance: AZTREONAM
  5. TYLENOL [Concomitant]
     Active Substance: ACETAMINOPHEN
  6. METANX [Concomitant]
     Active Substance: LEVOMEFOLATE CALCIUM\METHYLCOBALAMIN\PYRIDOXAL PHOSPHATE ANHYDROUS
  7. LEVOTHYROXINE. [Concomitant]
     Active Substance: LEVOTHYROXINE
  8. NORVASC [Concomitant]
     Active Substance: AMLODIPINE BESYLATE
  9. PREVACID 24 HR [Suspect]
     Active Substance: LANSOPRAZOLE
     Route: 065
  10. FUROSEMIDE. [Concomitant]
     Active Substance: FUROSEMIDE
  11. GLYBURIDE. [Concomitant]
     Active Substance: GLYBURIDE
  12. METRONIDAZOLE. [Concomitant]
     Active Substance: METRONIDAZOLE
  13. LEVOXYL [Concomitant]
     Active Substance: LEVOTHYROXINE SODIUM
  14. COREG [Concomitant]
     Active Substance: CARVEDILOL
  15. INSULIN [Concomitant]
     Active Substance: INSULIN NOS
  16. LYRICA [Concomitant]
     Active Substance: PREGABALIN
  17. FOLIC ACID. [Concomitant]
     Active Substance: FOLIC ACID
  18. ALLOPURINOL. [Concomitant]
     Active Substance: ALLOPURINOL
  19. INSULIN [Concomitant]
     Active Substance: INSULIN NOS
  20. LASIX [Concomitant]
     Active Substance: FUROSEMIDE
  21. FOLIC ACID. [Concomitant]
     Active Substance: FOLIC ACID
  22. ALLOPURINOL. [Concomitant]
     Active Substance: ALLOPURINOL
  23. CARVEDILOL. [Concomitant]
     Active Substance: CARVEDILOL
  24. LEVOTHYROXINE SODIUM. [Concomitant]
     Active Substance: LEVOTHYROXINE SODIUM
  25. SITAGLIPTIN [Concomitant]
     Active Substance: SITAGLIPTIN
  26. NEXIUM [Suspect]
     Active Substance: ESOMEPRAZOLE MAGNESIUM
     Route: 048
  27. MAGNESIUM OXIDE. [Concomitant]
     Active Substance: MAGNESIUM OXIDE
  28. COLACE [Concomitant]
     Active Substance: DOCUSATE SODIUM
  29. CIPROFLOXACIN. [Concomitant]
     Active Substance: CIPROFLOXACIN
  30. METOCLOPRAMIDE. [Concomitant]
     Active Substance: METOCLOPRAMIDE
  31. NEXIUM [Suspect]
     Active Substance: ESOMEPRAZOLE MAGNESIUM
     Dosage: GENERIC
     Route: 065
  32. DEXILANT [Suspect]
     Active Substance: DEXLANSOPRAZOLE
     Route: 065
  33. CLOPIDOGREL [Concomitant]
     Active Substance: CLOPIDOGREL BISULFATE
  34. PROTONIX [Concomitant]
     Active Substance: PANTOPRAZOLE SODIUM
  35. VANCOMYCIN [Concomitant]
     Active Substance: VANCOMYCIN
  36. ZOLPIDEM TARTRATE. [Concomitant]
     Active Substance: ZOLPIDEM TARTRATE
  37. CARVEDILOL. [Concomitant]
     Active Substance: CARVEDILOL
  38. AMLODIPINE [Concomitant]
     Active Substance: AMLODIPINE BESYLATE
  39. NEXIUM 24HR [Suspect]
     Active Substance: ESOMEPRAZOLE MAGNESIUM
     Route: 048
  40. PRILOSEC [Suspect]
     Active Substance: OMEPRAZOLE MAGNESIUM
     Route: 048
  41. CARAFATE [Concomitant]
     Active Substance: SUCRALFATE
  42. ALBUTEROL. [Concomitant]
     Active Substance: ALBUTEROL
  43. NEXIUM [Suspect]
     Active Substance: ESOMEPRAZOLE MAGNESIUM
     Route: 048
  44. CIPRO [Concomitant]
     Active Substance: CIPROFLOXACIN HYDROCHLORIDE
  45. FOLIC ACID. [Concomitant]
     Active Substance: FOLIC ACID
  46. JANUVIA [Concomitant]
     Active Substance: SITAGLIPTIN PHOSPHATE
  47. OXYCONTIN [Concomitant]
     Active Substance: OXYCODONE HYDROCHLORIDE
  48. TRAMADOL. [Concomitant]
     Active Substance: TRAMADOL
  49. CLINDAMYCIN. [Concomitant]
     Active Substance: CLINDAMYCIN

REACTIONS (6)
  - End stage renal disease [Unknown]
  - Tubulointerstitial nephritis [Unknown]
  - Renal failure [Unknown]
  - Acute kidney injury [Unknown]
  - Chronic kidney disease [Unknown]
  - Dyspepsia [Unknown]

NARRATIVE: CASE EVENT DATE: 201203
